FAERS Safety Report 8522330-4 (Version None)
Quarter: 2012Q3

REPORT INFORMATION
  Report Type: 
  Country: None (occurrence: None)
  Receive Date: 20120719
  Receipt Date: 20120712
  Transmission Date: 20120928
  Serious: Yes (Other)
  Sender: FDA-Public Use
  Company Number: US-US-EMD SERONO, INC.-7031448

PATIENT
  Sex: Female
  Weight: 56 kg

DRUGS (7)
  1. REBIF [Suspect]
     Indication: MULTIPLE SCLEROSIS
     Route: 058
     Dates: start: 20080414
  2. REBIF [Suspect]
     Route: 058
  3. IBUPROFEN [Concomitant]
     Indication: PREMEDICATION
  4. NEURONTIN [Concomitant]
     Indication: PAIN
  5. PROVIGIL [Concomitant]
     Indication: DECREASED ACTIVITY
  6. KLONOPIN [Concomitant]
     Indication: PRODUCT USED FOR UNKNOWN INDICATION
  7. REBIF [Suspect]
     Route: 058
     Dates: end: 20120312

REACTIONS (11)
  - INJECTION SITE ERYTHEMA [None]
  - INJECTION SITE RASH [None]
  - CEREBRAL ATROPHY [None]
  - MULTIPLE SCLEROSIS RELAPSE [None]
  - DEPRESSION [None]
  - BALANCE DISORDER [None]
  - TRIGEMINAL NEURALGIA [None]
  - ASTHENIA [None]
  - MUSCLE SPASTICITY [None]
  - INJECTION SITE PAIN [None]
  - GAIT DISTURBANCE [None]
